FAERS Safety Report 14021850 (Version 3)
Quarter: 2018Q1

REPORT INFORMATION
  Report Type: Spontaneous
  Country: US (occurrence: US)
  Receive Date: 20170928
  Receipt Date: 20180327
  Transmission Date: 20180508
  Serious: No
  Sender: FDA-Public Use
  Company Number: US-CLOVIS ONCOLOGY-CLO-2017-000920

PATIENT
  Age: 64 Year
  Sex: Female

DRUGS (3)
  1. RUBRACA [Suspect]
     Active Substance: RUCAPARIB CAMSYLATE
     Indication: MALIGNANT PERITONEAL NEOPLASM
     Dosage: 600 MG, BID
     Route: 048
     Dates: start: 20170801
  2. RUBRACA [Suspect]
     Active Substance: RUCAPARIB CAMSYLATE
     Dosage: 250 MG, UNK
  3. RUBRACA [Suspect]
     Active Substance: RUCAPARIB CAMSYLATE
     Dosage: 400 MG, BID
     Route: 048

REACTIONS (9)
  - Platelet count decreased [Unknown]
  - Therapy cessation [Unknown]
  - Drug dose omission [Unknown]
  - Therapy change [Unknown]
  - Off label use [Unknown]
  - Blood count abnormal [Unknown]
  - Influenza [Recovered/Resolved]
  - Nausea [Unknown]
  - Decreased appetite [Unknown]

NARRATIVE: CASE EVENT DATE: 2017
